FAERS Safety Report 25881583 (Version 1)
Quarter: 2025Q4

REPORT INFORMATION
  Report Type: Spontaneous
  Country: EU (occurrence: EU)
  Receive Date: 20251005
  Receipt Date: 20251005
  Transmission Date: 20260117
  Serious: Yes (Life-Threatening, Hospitalization, Other)
  Sender: Steriscience PTE
  Company Number: EU-STERISCIENCE B.V.-2025-ST-001537

PATIENT
  Age: 47 Year
  Sex: Male

DRUGS (3)
  1. ROCURONIUM BROMIDE [Suspect]
     Active Substance: ROCURONIUM BROMIDE
     Indication: General anaesthesia
     Dosage: 40 MILLIGRAM
     Route: 065
  2. PROPOFOL [Concomitant]
     Active Substance: PROPOFOL
     Indication: General anaesthesia
     Dosage: 200 MILLIGRAM
     Route: 065
  3. MIDAZOLAM [Concomitant]
     Active Substance: MIDAZOLAM
     Indication: General anaesthesia
     Dosage: 8 MILLIGRAM
     Route: 065

REACTIONS (2)
  - Hypofibrinogenaemia [Unknown]
  - Anaphylactic shock [None]
